FAERS Safety Report 10027577 (Version 2)
Quarter: 2014Q1

REPORT INFORMATION
  Report Type: Spontaneous
  Country: FR (occurrence: FR)
  Receive Date: 20140321
  Receipt Date: 20140321
  Transmission Date: 20141002
  Serious: Yes (Other)
  Sender: FDA-Public Use
  Company Number: FR-ABBVIE-14K-056-1208514-00

PATIENT
  Sex: Female

DRUGS (2)
  1. HUMIRA [Suspect]
     Indication: ANKYLOSING SPONDYLITIS
     Route: 058
     Dates: start: 20100514
  2. HUMIRA [Suspect]
     Route: 058
     Dates: start: 20100514

REACTIONS (3)
  - Hypersensitivity vasculitis [Recovered/Resolved]
  - Inappropriate schedule of drug administration [Unknown]
  - Rash papular [Recovered/Resolved]
